FAERS Safety Report 16934519 (Version 1)
Quarter: 2019Q4

REPORT INFORMATION
  Report Type: Spontaneous
  Country: AU (occurrence: AU)
  Receive Date: 20191018
  Receipt Date: 20191018
  Transmission Date: 20200122
  Serious: Yes (Hospitalization, Other)
  Sender: FDA-Public Use
  Company Number: AU-APRECIA PHARMACEUTICALS-APRE20192414

PATIENT
  Age: 57 Year
  Sex: Male

DRUGS (3)
  1. LEVETIRACETAM. [Suspect]
     Active Substance: LEVETIRACETAM
     Indication: SEIZURE PROPHYLAXIS
     Dosage: UNKNOWN
     Route: 065
  2. DEXAMETHASONE. [Concomitant]
     Active Substance: DEXAMETHASONE
     Dosage: 4 MG
     Route: 065
  3. DEXAMETHASONE. [Concomitant]
     Active Substance: DEXAMETHASONE
     Indication: PRODUCT USED FOR UNKNOWN INDICATION
     Dosage: 16 MG
     Route: 065

REACTIONS (7)
  - Abnormal behaviour [Recovering/Resolving]
  - Impulsive behaviour [Recovering/Resolving]
  - Delirium [Recovering/Resolving]
  - Personality change [Recovering/Resolving]
  - Aggression [Recovering/Resolving]
  - Hypersomnia [Recovering/Resolving]
  - Agitation [Recovering/Resolving]
